FAERS Safety Report 6414803-5 (Version None)
Quarter: 2009Q4

REPORT INFORMATION
  Report Type: 
  Country: None (occurrence: None)
  Receive Date: 20091026
  Receipt Date: 20091021
  Transmission Date: 20100525
  Serious: Yes (Death)
  Sender: FDA-Public Use
  Company Number: KE-GILEAD-2009-0024953

PATIENT
  Age: 42 Year
  Sex: Male
  Weight: 50 kg

DRUGS (5)
  1. TRUVADA [Suspect]
     Indication: HIV INFECTION
     Dates: start: 20090825, end: 20090906
  2. EFAVIRENZ [Suspect]
     Indication: HIV INFECTION
     Route: 048
     Dates: start: 20090825, end: 20090906
  3. SEPTRIN [Concomitant]
  4. RIFAMPICIN [Concomitant]
     Indication: PULMONARY TUBERCULOSIS
  5. ISONIAZID [Concomitant]
     Indication: PULMONARY TUBERCULOSIS

REACTIONS (1)
  - GASTROENTERITIS [None]
